FAERS Safety Report 24986734 (Version 4)
Quarter: 2025Q4

REPORT INFORMATION
  Report Type: Report from Study
  Country: JP (occurrence: JP)
  Receive Date: 20250219
  Receipt Date: 20251002
  Transmission Date: 20260117
  Serious: Yes (Death, Life-Threatening, Hospitalization, Other)
  Sender: ARGENX BVBA
  Company Number: JP-ARGENX-2025-ARGX-JP001937AA

PATIENT

DRUGS (96)
  1. EFGARTIGIMOD ALFA [Suspect]
     Active Substance: EFGARTIGIMOD ALFA
     Indication: Immune thrombocytopenia
     Dosage: 10 MG/KG
     Route: 042
     Dates: start: 20241128, end: 20250120
  2. Adona [Concomitant]
     Indication: Product used for unknown indication
     Dosage: 30 MG, TID
     Route: 048
     Dates: start: 20241128, end: 20241205
  3. ALBUMIN HUMAN [Concomitant]
     Active Substance: ALBUMIN HUMAN
     Indication: Product used for unknown indication
     Dosage: 50 ML, DAILY
     Route: 041
     Dates: start: 20250306, end: 20250306
  4. ALBUMIN HUMAN [Concomitant]
     Active Substance: ALBUMIN HUMAN
     Dosage: 50 ML, DAILY
     Route: 041
     Dates: start: 20250310, end: 20250310
  5. ALBUMIN HUMAN [Concomitant]
     Active Substance: ALBUMIN HUMAN
     Dosage: 50 ML, BID
     Route: 041
     Dates: start: 20250307, end: 20250308
  6. ALENDRONATE [Concomitant]
     Active Substance: ALENDRONATE SODIUM
     Indication: Product used for unknown indication
     Dosage: 35 MG, DAILY
     Route: 048
     Dates: start: 20241129, end: 20241129
  7. AZILSARTAN KAMEDOXOMIL [Concomitant]
     Active Substance: AZILSARTAN KAMEDOXOMIL
     Indication: Product used for unknown indication
     Dosage: 20 MG, DAILY
     Route: 048
     Dates: start: 20241129, end: 20241217
  8. AZILSARTAN KAMEDOXOMIL [Concomitant]
     Active Substance: AZILSARTAN KAMEDOXOMIL
     Dosage: 20 MG, DAILY
     Route: 048
     Dates: start: 20250128, end: 20250313
  9. SULFAMETHOXAZOLE\TRIMETHOPRIM [Concomitant]
     Active Substance: SULFAMETHOXAZOLE\TRIMETHOPRIM
     Indication: Product used for unknown indication
     Dosage: 1 DOSAGE FORM, DAILY
     Route: 048
     Dates: start: 20241129, end: 20250207
  10. SULFAMETHOXAZOLE\TRIMETHOPRIM [Concomitant]
     Active Substance: SULFAMETHOXAZOLE\TRIMETHOPRIM
     Dosage: 1 DOSAGE FORM, 3/WEEK
     Route: 048
     Dates: start: 20250224, end: 20250226
  11. BETAHISTINE MESILATE [Concomitant]
     Active Substance: BETAHISTINE MESILATE
     Indication: Product used for unknown indication
     Dosage: 6 MG, TID
     Route: 048
     Dates: start: 20241129, end: 20241217
  12. CALCIUM GLUCONATE [Concomitant]
     Active Substance: CALCIUM GLUCONATE
     Indication: Product used for unknown indication
     Dosage: 10 ML
     Route: 041
     Dates: start: 20250310, end: 20250316
  13. CARBAZOCHROME SODIUM SULFONATE [Concomitant]
     Active Substance: CARBAZOCHROME SODIUM SULFONATE
     Indication: Product used for unknown indication
     Dosage: 1 DOSAGE FORM
     Route: 041
     Dates: start: 20250206, end: 20250206
  14. CEFMETAZOLE SODIUM [Concomitant]
     Active Substance: CEFMETAZOLE SODIUM
     Indication: Product used for unknown indication
     Dosage: 1 G, TID
     Route: 041
     Dates: start: 20250303, end: 20250303
  15. CEFMETAZOLE SODIUM [Concomitant]
     Active Substance: CEFMETAZOLE SODIUM
     Dosage: 1 G, QID
     Route: 041
     Dates: start: 20250304, end: 20250307
  16. CEFTAZIDIME [Concomitant]
     Active Substance: CEFTAZIDIME
     Indication: Product used for unknown indication
     Dosage: 2 G, DAILY
     Route: 041
     Dates: start: 20250311, end: 20250311
  17. CEFTAZIDIME [Concomitant]
     Active Substance: CEFTAZIDIME
     Dosage: 2 G, BID
     Route: 041
     Dates: start: 20250312, end: 20250313
  18. CEFTRIAXONE SODIUM [Concomitant]
     Active Substance: CEFTRIAXONE SODIUM
     Indication: Product used for unknown indication
     Dosage: 2 G, DAILY
     Route: 041
     Dates: start: 20250310, end: 20250311
  19. CEFTRIAXONE SODIUM [Concomitant]
     Active Substance: CEFTRIAXONE SODIUM
     Dosage: 2B, DAILY
     Route: 041
     Dates: start: 20250314, end: 20250318
  20. DIPHENIDOL HYDROCHLORIDE [Concomitant]
     Active Substance: DIPHENIDOL HYDROCHLORIDE
     Indication: Product used for unknown indication
     Dosage: 25 MG, TID
     Route: 048
     Dates: start: 20241129, end: 20241217
  21. DEXAMETHASONE [Concomitant]
     Active Substance: DEXAMETHASONE
     Indication: Product used for unknown indication
     Dosage: UNK
     Route: 065
     Dates: start: 20250211
  22. FELBINAC [Concomitant]
     Active Substance: FELBINAC
     Indication: Product used for unknown indication
     Dosage: UNK
     Route: 065
     Dates: start: 20250210
  23. FUROSEMIDE [Concomitant]
     Active Substance: FUROSEMIDE
     Indication: Product used for unknown indication
     Dosage: 20 MG, DAILY
     Route: 042
     Dates: start: 20250209, end: 20250210
  24. FUROSEMIDE [Concomitant]
     Active Substance: FUROSEMIDE
     Dosage: 20 MG, DAILY
     Route: 042
     Dates: start: 20250304, end: 20250304
  25. FUROSEMIDE [Concomitant]
     Active Substance: FUROSEMIDE
     Dosage: 20 MG, DAILY
     Route: 042
     Dates: start: 20250306, end: 20250308
  26. FUROSEMIDE [Concomitant]
     Active Substance: FUROSEMIDE
     Indication: Product used for unknown indication
     Dosage: 20 MG, DAILY
     Route: 048
     Dates: start: 20250211, end: 20250227
  27. FUROSEMIDE [Concomitant]
     Active Substance: FUROSEMIDE
     Dosage: 20 MG, BID
     Route: 042
     Dates: start: 20250305, end: 20250305
  28. POTASSIUM GLUCONATE [Concomitant]
     Active Substance: POTASSIUM GLUCONATE
     Indication: Product used for unknown indication
     Dosage: 2 DOSAGE FORM, TID
     Route: 048
     Dates: start: 20250311, end: 20250313
  29. DEXTROSE [Concomitant]
     Active Substance: DEXTROSE MONOHYDRATE
     Dosage: 10 G, DAILY
     Route: 065
     Dates: start: 20250313, end: 20250313
  30. DEXTROSE [Concomitant]
     Active Substance: DEXTROSE MONOHYDRATE
     Indication: Product used for unknown indication
     Dosage: 10 G, PRN
     Route: 065
     Dates: start: 20250226, end: 20250226
  31. DEXTROSE [Concomitant]
     Active Substance: DEXTROSE MONOHYDRATE
     Dosage: UNK UNK, BID
     Route: 041
     Dates: start: 20250315, end: 20250315
  32. DEXTROSE [Concomitant]
     Active Substance: DEXTROSE MONOHYDRATE
     Indication: Product used for unknown indication
     Dosage: 1A
     Route: 042
     Dates: start: 20250206, end: 20250206
  33. DEXTROSE [Concomitant]
     Active Substance: DEXTROSE MONOHYDRATE
     Dosage: 1A
     Route: 042
     Dates: start: 20250301, end: 20250301
  34. DEXTROSE [Concomitant]
     Active Substance: DEXTROSE MONOHYDRATE
     Dosage: 2A
     Route: 041
     Dates: start: 20250311, end: 20250311
  35. GLYCERIN [Concomitant]
     Active Substance: GLYCERIN
     Indication: Product used for unknown indication
     Dosage: 60 ML, DAILY
     Route: 054
     Dates: start: 20250301, end: 20250301
  36. Heparinoid [Concomitant]
     Indication: Product used for unknown indication
     Dosage: UNK
     Route: 065
     Dates: start: 20250309
  37. Kakonto tsumura [Concomitant]
     Indication: Product used for unknown indication
     Dosage: 2.5 G, TID
     Route: 048
     Dates: start: 20250209, end: 20250210
  38. MENATETRENONE [Concomitant]
     Active Substance: MENATETRENONE
     Indication: Product used for unknown indication
     Dosage: 10 MG
     Route: 042
     Dates: start: 20250207, end: 20250210
  39. KENKETU GLOVENIN-I [Concomitant]
     Active Substance: HUMAN IMMUNOGLOBULIN G
     Indication: Product used for unknown indication
     Dosage: 12.5G/250ML
     Route: 041
     Dates: start: 20250313, end: 20250313
  40. LANSOPRAZOLE [Concomitant]
     Active Substance: LANSOPRAZOLE
     Indication: Product used for unknown indication
     Dosage: 15 MG, DAILY
     Route: 048
     Dates: start: 20241129, end: 20250313
  41. BUPRENORPHINE HYDROCHLORIDE [Concomitant]
     Active Substance: BUPRENORPHINE HYDROCHLORIDE
     Indication: Product used for unknown indication
     Dosage: 10 DOSAGE FORM, DAILY
     Route: 041
     Dates: start: 20250313, end: 20250318
  42. BENSERAZIDE HYDROCHLORIDE\LEVODOPA [Concomitant]
     Active Substance: BENSERAZIDE HYDROCHLORIDE\LEVODOPA
     Indication: Product used for unknown indication
     Dosage: 4.5 DOSAGE FORM
     Route: 048
     Dates: start: 20241129, end: 20241217
  43. BENSERAZIDE HYDROCHLORIDE\LEVODOPA [Concomitant]
     Active Substance: BENSERAZIDE HYDROCHLORIDE\LEVODOPA
     Dosage: 4.5 DOSAGE FORM
     Route: 048
     Dates: start: 20250129, end: 20250316
  44. MAGNESIUM OXIDE [Concomitant]
     Active Substance: MAGNESIUM OXIDE
     Indication: Product used for unknown indication
     Dosage: 330 MG, DAILY
     Route: 048
     Dates: start: 20241129, end: 20241129
  45. MAGNESIUM OXIDE [Concomitant]
     Active Substance: MAGNESIUM OXIDE
     Dosage: 330 MG, DAILY
     Route: 048
     Dates: start: 20241130, end: 20241130
  46. MAGNESIUM OXIDE [Concomitant]
     Active Substance: MAGNESIUM OXIDE
     Dosage: 330 MG, BID
     Route: 048
     Dates: start: 20250307, end: 20250313
  47. MAGNESIUM OXIDE [Concomitant]
     Active Substance: MAGNESIUM OXIDE
     Dosage: 330 MG, TID
     Route: 048
     Dates: start: 20241201, end: 20250131
  48. MAGNESIUM OXIDE [Concomitant]
     Active Substance: MAGNESIUM OXIDE
     Dosage: 330 MG, QID
     Route: 048
     Dates: start: 20250301, end: 20250305
  49. GLYCYRRHIZIN [Concomitant]
     Active Substance: GLYCYRRHIZIN
     Indication: Product used for unknown indication
     Dosage: 40 ML
     Route: 041
     Dates: start: 20250207, end: 20250210
  50. VITAMINS [Concomitant]
     Active Substance: VITAMINS
     Indication: Product used for unknown indication
     Dosage: 2 DOSAGE FORM, BID
     Route: 048
     Dates: start: 20250129, end: 20250208
  51. ISTRADEFYLLINE [Concomitant]
     Active Substance: ISTRADEFYLLINE
     Indication: Product used for unknown indication
     Dosage: 20 MG, BID
     Route: 048
     Dates: start: 20241129, end: 20241217
  52. ISTRADEFYLLINE [Concomitant]
     Active Substance: ISTRADEFYLLINE
     Dosage: 20 MG, BID
     Route: 048
     Dates: start: 20250129, end: 20250313
  53. NOVOLIN R [Concomitant]
     Active Substance: INSULIN HUMAN
     Dosage: 5 UNIT, DAILY
     Route: 041
     Dates: start: 20250208, end: 20250209
  54. NOVOLIN R [Concomitant]
     Active Substance: INSULIN HUMAN
     Indication: Product used for unknown indication
     Dosage: 5 UNIT, BID
     Route: 041
     Dates: start: 20250207, end: 20250207
  55. MORPHINE HYDROCHLORIDE [Concomitant]
     Active Substance: MORPHINE HYDROCHLORIDE
     Indication: Abdominal pain
     Dosage: 2.5 ML
     Route: 048
     Dates: start: 20250313
  56. OXYCODONE [Concomitant]
     Active Substance: OXYCODONE
     Indication: Product used for unknown indication
     Dosage: 3 DOSAGE FORM
     Route: 058
     Dates: start: 20250318, end: 20250323
  57. PREDNISOLONE [Concomitant]
     Active Substance: PREDNISOLONE
     Dosage: 3 MG, DAILY
     Route: 048
     Dates: start: 20250224, end: 20250313
  58. PREDNISOLONE [Concomitant]
     Active Substance: PREDNISOLONE
     Indication: Product used for unknown indication
     Dosage: 4 MG, DAILY
     Route: 048
     Dates: start: 20250205, end: 20250207
  59. PREDONINE [Concomitant]
     Active Substance: PREDNISOLONE
     Indication: Product used for unknown indication
     Dosage: 0.2 DOSAGE FORM
     Route: 042
     Dates: start: 20250311, end: 20250311
  60. PREDONINE [Concomitant]
     Active Substance: PREDNISOLONE
     Dosage: 10 MG, DAILY
     Route: 048
     Dates: start: 20250219, end: 20250223
  61. PREDONINE [Concomitant]
     Active Substance: PREDNISOLONE
     Dosage: 10 MG, BID
     Route: 048
     Dates: start: 20250209, end: 20250212
  62. PREDONINE [Concomitant]
     Active Substance: PREDNISOLONE
     Dosage: 10 MG
     Route: 048
     Dates: start: 20241223, end: 20250119
  63. PREDONINE [Concomitant]
     Active Substance: PREDNISOLONE
     Dosage: 12.5 MG
     Route: 048
     Dates: start: 20241216, end: 20241222
  64. PREDONINE [Concomitant]
     Active Substance: PREDNISOLONE
     Dosage: 15 MG, DAILY
     Route: 048
     Dates: start: 20250214, end: 20250218
  65. PREDONINE [Concomitant]
     Active Substance: PREDNISOLONE
     Indication: Product used for unknown indication
     Dosage: 15 MG
     Route: 048
     Dates: start: 20241129, end: 20241215
  66. PREDONINE [Concomitant]
     Active Substance: PREDNISOLONE
     Dosage: 20 MG, DAILY
     Route: 048
     Dates: start: 20250213, end: 20250213
  67. PREDONINE [Concomitant]
     Active Substance: PREDNISOLONE
     Dosage: 5 MG, DAILY
     Route: 048
     Dates: start: 20250127, end: 20250204
  68. PREDONINE [Concomitant]
     Active Substance: PREDNISOLONE
     Dosage: 5 MG, DAILY
     Route: 048
     Dates: start: 20250224, end: 20250313
  69. PREDONINE [Concomitant]
     Active Substance: PREDNISOLONE
     Dosage: 5 MG
     Route: 042
     Dates: start: 20250313, end: 20250318
  70. PREDONINE [Concomitant]
     Active Substance: PREDNISOLONE
     Dosage: 7.5 MG
     Route: 048
     Dates: start: 20250120, end: 20250126
  71. ELTROMBOPAG OLAMINE [Concomitant]
     Active Substance: ELTROMBOPAG OLAMINE
     Indication: Product used for unknown indication
     Dosage: 12.5 MG, TID
     Route: 048
     Dates: start: 20241129, end: 20250313
  72. SODIUM PHOSPHATE [Concomitant]
     Active Substance: SODIUM PHOSPHATE
     Indication: Product used for unknown indication
     Dosage: 0.5  MMOL
     Route: 041
     Dates: start: 20250207, end: 20250209
  73. SODIUM PHOSPHATE [Concomitant]
     Active Substance: SODIUM PHOSPHATE
     Dosage: 1 MMOL
     Route: 041
     Dates: start: 20250225, end: 20250303
  74. SODIUM PHOSPHATE [Concomitant]
     Active Substance: SODIUM PHOSPHATE
     Dosage: 1 MMOL
     Route: 042
     Dates: start: 20250310, end: 20250313
  75. SODIUM BICARBONATE [Concomitant]
     Active Substance: SODIUM BICARBONATE
     Indication: Therapeutic gargle
     Dosage: 10 G, DAILY
     Route: 002
     Dates: start: 20250106, end: 20250106
  76. Solacet d [Concomitant]
     Dosage: 500 ML, DAILY
     Route: 041
     Dates: start: 20250208, end: 20250209
  77. Solacet d [Concomitant]
     Dosage: 500 ML, DAILY
     Route: 041
     Dates: start: 20250310, end: 20250310
  78. Solacet d [Concomitant]
     Dosage: 500 ML, DAILY
     Route: 041
     Dates: start: 20250313, end: 20250313
  79. Solacet d [Concomitant]
     Indication: Product used for unknown indication
     Dosage: 500 ML, BID
     Route: 041
     Dates: start: 20250206, end: 20250207
  80. Solacet d [Concomitant]
     Dosage: 500 ML, BID
     Route: 041
     Dates: start: 20250306, end: 20250309
  81. Solacet d [Concomitant]
     Dosage: 500 ML, TID
     Route: 041
     Dates: start: 20250304, end: 20250304
  82. Solacet d [Concomitant]
     Dosage: 500 ML, QID
     Route: 041
     Dates: start: 20250305, end: 20250305
  83. CALCIUM CHLORIDE\POTASSIUM CHLORIDE\SODIUM ACETATE\SODIUM CHLORIDE [Concomitant]
     Active Substance: CALCIUM CHLORIDE\POTASSIUM CHLORIDE\SODIUM ACETATE\SODIUM CHLORIDE
     Indication: Product used for unknown indication
     Dosage: 500 ML, DAILY
     Route: 041
     Dates: start: 20250206, end: 20250206
  84. CALCIUM CHLORIDE\POTASSIUM CHLORIDE\SODIUM ACETATE\SODIUM CHLORIDE [Concomitant]
     Active Substance: CALCIUM CHLORIDE\POTASSIUM CHLORIDE\SODIUM ACETATE\SODIUM CHLORIDE
     Dosage: 500 ML, DAILY
     Route: 041
     Dates: start: 20250304, end: 20250304
  85. CALCIUM CHLORIDE\POTASSIUM CHLORIDE\SODIUM ACETATE\SODIUM CHLORIDE [Concomitant]
     Active Substance: CALCIUM CHLORIDE\POTASSIUM CHLORIDE\SODIUM ACETATE\SODIUM CHLORIDE
     Dosage: 500 ML, TID
     Route: 041
     Dates: start: 20250303, end: 20250303
  86. SOLU-MEDROL [Concomitant]
     Active Substance: METHYLPREDNISOLONE SODIUM SUCCINATE
     Indication: Product used for unknown indication
     Dosage: 1000 ML
     Route: 041
     Dates: start: 20250206, end: 20250208
  87. PENTAZOCINE [Concomitant]
     Active Substance: PENTAZOCINE
     Indication: Product used for unknown indication
     Dosage: 15 MG
     Route: 065
     Dates: start: 20250206, end: 20250206
  88. SPIRONOLACTONE [Concomitant]
     Active Substance: SPIRONOLACTONE
     Indication: Product used for unknown indication
     Dosage: 50 MG, DAILY
     Route: 048
     Dates: start: 20250310, end: 20250313
  89. TRAZODONE [Concomitant]
     Active Substance: TRAZODONE HYDROCHLORIDE
     Dosage: 25 MG, DAILY
     Route: 048
     Dates: start: 20250226, end: 20250316
  90. TRAZODONE [Concomitant]
     Active Substance: TRAZODONE HYDROCHLORIDE
     Indication: Product used for unknown indication
     Dosage: 50 MG, BID
     Route: 048
     Dates: start: 20250210, end: 20250225
  91. VALGANCICLOVIR HYDROCHLORIDE [Concomitant]
     Active Substance: VALGANCICLOVIR HYDROCHLORIDE
     Indication: Product used for unknown indication
     Dosage: 450 MG, BID
     Route: 048
     Dates: start: 20250127, end: 20250127
  92. CYANOCOBALAMIN\PYRIDOXINE HYDROCHLORIDE\THIAMINE [Concomitant]
     Active Substance: CYANOCOBALAMIN\PYRIDOXINE HYDROCHLORIDE\THIAMINE
     Indication: Product used for unknown indication
     Dosage: 1 DOSAGE FORM, DAILY
     Route: 041
     Dates: start: 20250311, end: 20250311
  93. CYANOCOBALAMIN\PYRIDOXINE HYDROCHLORIDE\THIAMINE [Concomitant]
     Active Substance: CYANOCOBALAMIN\PYRIDOXINE HYDROCHLORIDE\THIAMINE
     Indication: Product used for unknown indication
     Dosage: 25 UNK, TID
     Route: 048
     Dates: start: 20241129, end: 20241217
  94. ZONISAMIDE [Concomitant]
     Active Substance: ZONISAMIDE
     Indication: Product used for unknown indication
     Dosage: 25 MG, BID
     Route: 048
     Dates: start: 20241129, end: 20241217
  95. ZONISAMIDE [Concomitant]
     Active Substance: ZONISAMIDE
     Dosage: 25 MG, BID
     Route: 048
     Dates: start: 20250129, end: 20250313
  96. ZOPICLONE [Concomitant]
     Active Substance: ZOPICLONE
     Indication: Product used for unknown indication
     Dosage: 7.5 MG, DAILY
     Route: 048
     Dates: start: 20250129, end: 20250208

REACTIONS (12)
  - Pancreatitis acute [Fatal]
  - Autoimmune hepatitis [Unknown]
  - Aspartate aminotransferase increased [Unknown]
  - Alanine aminotransferase increased [Unknown]
  - Blood lactate dehydrogenase increased [Unknown]
  - Blood alkaline phosphatase increased [Unknown]
  - Gamma-glutamyltransferase increased [Unknown]
  - Blood bilirubin increased [Unknown]
  - Blood creatinine increased [Unknown]
  - Blood glucose decreased [Unknown]
  - White blood cell count increased [Unknown]
  - Haemoglobin decreased [Unknown]

NARRATIVE: CASE EVENT DATE: 20250101
